FAERS Safety Report 7735348-6 (Version None)
Quarter: 2011Q3

REPORT INFORMATION
  Report Type: 
  Country: None (occurrence: None)
  Receive Date: 20110907
  Receipt Date: 20110902
  Transmission Date: 20111222
  Serious: Yes (Death)
  Sender: FDA-Public Use
  Company Number: US-ABBOTT-11P-163-0697654-00

PATIENT
  Sex: Female
  Weight: 51.756 kg

DRUGS (8)
  1. LEVSIN [Concomitant]
     Indication: ABDOMINAL PAIN UPPER
  2. BIRTH CONTROL [Concomitant]
     Indication: CONTRACEPTION
  3. VITAMIN B-12 [Concomitant]
     Indication: PRODUCT USED FOR UNKNOWN INDICATION
     Dates: start: 20101222, end: 20101222
  4. LEVSIN [Concomitant]
     Indication: PROPHYLAXIS
  5. MERCAPTOPURINE [Concomitant]
     Indication: CROHN'S DISEASE
     Dates: start: 20060201, end: 20110101
  6. HUMIRA [Suspect]
     Indication: CROHN'S DISEASE
     Route: 058
     Dates: start: 20081030, end: 20101101
  7. ENTOCORT EC [Concomitant]
     Indication: CROHN'S DISEASE
  8. CIPROFLOXACIN [Concomitant]
     Indication: CROHN'S DISEASE

REACTIONS (7)
  - MENINGITIS MENINGOCOCCAL [None]
  - PYREXIA [None]
  - MYALGIA [None]
  - WHITE BLOOD CELL COUNT DECREASED [None]
  - CROHN'S DISEASE [None]
  - MENINGOCOCCAL SEPSIS [None]
  - DISSEMINATED INTRAVASCULAR COAGULATION [None]
